FAERS Safety Report 14073917 (Version 1)
Quarter: 2017Q4

REPORT INFORMATION
  Report Type: Spontaneous
  Country: US (occurrence: US)
  Receive Date: 20171010
  Receipt Date: 20171010
  Transmission Date: 20180321
  Serious: No
  Sender: FDA-Public Use
  Company Number: US-JNJFOC-20170915792

PATIENT
  Sex: Female
  Weight: 38.56 kg

DRUGS (1)
  1. TYLENOL EXTRA STRENGTH [Suspect]
     Active Substance: ACETAMINOPHEN
     Indication: PRODUCT USED FOR UNKNOWN INDICATION
     Dosage: 1 CAPLET IN THE MORNING, AND 1 CAPLET AT NIGHT.
     Route: 048

REACTIONS (1)
  - Incorrect dose administered [Unknown]
